FAERS Safety Report 24399655 (Version 3)
Quarter: 2024Q4

REPORT INFORMATION
  Report Type: Spontaneous
  Country: JP (occurrence: JP)
  Receive Date: 20241005
  Receipt Date: 20241021
  Transmission Date: 20250115
  Serious: Yes (Death, Hospitalization, Other)
  Sender: ROCHE
  Company Number: JP-CHUGAI-2024034083

PATIENT
  Age: 76 Year
  Sex: Male

DRUGS (2)
  1. EVRYSDI [Suspect]
     Active Substance: RISDIPLAM
     Indication: Spinal muscular atrophy
     Dosage: UNK
     Route: 050
     Dates: start: 20230208, end: 20240909
  2. EVRYSDI [Suspect]
     Active Substance: RISDIPLAM
     Dosage: UNK
     Route: 050
     Dates: start: 20230629, end: 20240909

REACTIONS (3)
  - Pneumonia aspiration [Fatal]
  - Respiratory failure [Unknown]
  - Sputum retention [Unknown]

NARRATIVE: CASE EVENT DATE: 20240514
